FAERS Safety Report 9533753 (Version 1)
Quarter: 2013Q3

REPORT INFORMATION
  Report Type: Spontaneous
  Country: GB (occurrence: GB)
  Receive Date: 20130918
  Receipt Date: 20130918
  Transmission Date: 20140515
  Serious: Yes (Life-Threatening, Hospitalization, Other)
  Sender: FDA-Public Use
  Company Number: GB-WATSON-2013-16088

PATIENT
  Age: 76 Year
  Sex: Female

DRUGS (4)
  1. TRIMETHOPRIM (UNKNOWN) [Suspect]
     Indication: URINARY TRACT INFECTION
     Dosage: 200 MG, BID
     Route: 048
     Dates: start: 20120209
  2. WARFARIN (UNKNOWN) [Suspect]
     Indication: ATRIAL FIBRILLATION
     Dosage: UNKNOWN DOSE, AS PER INR, LONG TERM
     Route: 048
  3. BISOPROLOL [Concomitant]
     Indication: PRODUCT USED FOR UNKNOWN INDICATION
     Dosage: 5 MG, DAILY
     Route: 065
  4. SIMVASTATIN [Concomitant]
     Indication: PRODUCT USED FOR UNKNOWN INDICATION
     Dosage: 20 MG, DAILY, TAKEN AT NIGHT
     Route: 065

REACTIONS (1)
  - International normalised ratio increased [Recovered/Resolved]
